FAERS Safety Report 9008293 (Version 3)
Quarter: 2013Q1

REPORT INFORMATION
  Report Type: Spontaneous
  Country: US (occurrence: None)
  Receive Date: 20121227
  Receipt Date: 20130320
  Transmission Date: 20140127
  Serious: Yes (Death)
  Sender: FDA-Public Use
  Company Number: AUR-APL-2012-05485

PATIENT
  Age: 48 Year
  Sex: Female
  Weight: 90.72 kg

DRUGS (9)
  1. GABAPENTIN [Suspect]
     Indication: PRODUCT USED FOR UNKNOWN INDICATION
  2. NAPROXEN [Suspect]
     Indication: PRODUCT USED FOR UNKNOWN INDICATION
  3. FLEXERIL (CYCLOBENZAPRINE HYDROCHLORIDE) [Suspect]
     Indication: PAIN
  4. CELEXA [Suspect]
     Indication: PRODUCT USED FOR UNKNOWN INDICATION
  5. MOTRIN (IBUPROFEN) [Suspect]
     Indication: PAIN
  6. DIAZEPAM [Suspect]
     Indication: PRODUCT USED FOR UNKNOWN INDICATION
  7. DURAGESIC [Suspect]
     Indication: PAIN
     Route: 062
  8. ROXICODONE [Suspect]
     Indication: PAIN
     Dosage: AS NEEDED
     Route: 048
  9. CAFFEINE [Suspect]
     Indication: PRODUCT USED FOR UNKNOWN INDICATION

REACTIONS (12)
  - Cardiac arrest [None]
  - Apnoea [None]
  - Peripheral coldness [None]
  - Muscle rigidity [None]
  - Livedo reticularis [None]
  - Visceral congestion [None]
  - Hypertrophic cardiomyopathy [None]
  - Hypertensive cardiomyopathy [None]
  - Hepatomegaly [None]
  - Hepatic steatosis [None]
  - Aortic valve disease [None]
  - Prescribed overdose [None]
